FAERS Safety Report 20177516 (Version 2)
Quarter: 2022Q1

REPORT INFORMATION
  Report Type: Spontaneous
  Country: GB (occurrence: GB)
  Receive Date: 20211213
  Receipt Date: 20220118
  Transmission Date: 20220423
  Serious: Yes (Death, Hospitalization, Other)
  Sender: FDA-Public Use
  Company Number: GB-Stemline Therapeutics, Inc.-2021ST000071

PATIENT
  Age: 64 Year
  Sex: Male

DRUGS (13)
  1. ELZONRIS [Suspect]
     Active Substance: TAGRAXOFUSP-ERZS
     Indication: Blastic plasmacytoid dendritic cell neoplasia
     Dosage: DAY 1 TO DAY 5 CYCLE
     Route: 042
     Dates: start: 20211206, end: 20211207
  2. ACYCLOVIR [Concomitant]
     Active Substance: ACYCLOVIR
     Indication: Prophylaxis
     Route: 048
     Dates: start: 2020
  3. FLUCONAZOLE [Concomitant]
     Active Substance: FLUCONAZOLE
     Indication: Prophylaxis
     Route: 048
     Dates: start: 2020
  4. LEVOFLOXACIN [Concomitant]
     Active Substance: LEVOFLOXACIN
     Indication: Prophylaxis
     Route: 048
     Dates: start: 2020
  5. AMLODIPINE [Concomitant]
     Active Substance: AMLODIPINE BESYLATE
     Indication: Hypertension
     Route: 048
     Dates: start: 202109
  6. ISOSORBIDE MONONITRATE [Concomitant]
     Active Substance: ISOSORBIDE MONONITRATE
     Indication: Angina pectoris
     Route: 048
     Dates: start: 202109
  7. LISINOPRIL [Concomitant]
     Active Substance: LISINOPRIL
     Indication: Hypertension
     Route: 048
     Dates: start: 2020
  8. LISINOPRIL [Concomitant]
     Active Substance: LISINOPRIL
     Indication: Angina pectoris
  9. BISOPROLOL [Concomitant]
     Active Substance: BISOPROLOL
     Indication: Hypertension
     Route: 048
     Dates: start: 2020
  10. BISOPROLOL [Concomitant]
     Active Substance: BISOPROLOL
     Indication: Angina pectoris
  11. ATORVASTATIN [Concomitant]
     Active Substance: ATORVASTATIN
     Indication: Hypercholesterolaemia
     Route: 048
  12. ASPIRIN [Concomitant]
     Active Substance: ASPIRIN
     Indication: Angina pectoris
     Route: 048
     Dates: start: 2020
  13. ASPIRIN [Concomitant]
     Active Substance: ASPIRIN
     Indication: Peripheral vascular disorder

REACTIONS (8)
  - Acute myocardial infarction [Fatal]
  - Cardiac failure acute [Unknown]
  - Thrombocytopenia [Unknown]
  - Weight increased [Unknown]
  - Skin lesion [Unknown]
  - Abdominal pain upper [Unknown]
  - Blood pressure decreased [Unknown]
  - Abdominal discomfort [Unknown]

NARRATIVE: CASE EVENT DATE: 20211206
